FAERS Safety Report 25382116 (Version 1)
Quarter: 2025Q2

REPORT INFORMATION
  Report Type: Spontaneous
  Country: IN (occurrence: IN)
  Receive Date: 20250531
  Receipt Date: 20250531
  Transmission Date: 20250717
  Serious: Yes (Other)
  Sender: HETERO
  Company Number: IN-HETERO-HET2025IN02714

PATIENT
  Age: 40 Year

DRUGS (1)
  1. TENOFOVIR [Suspect]
     Active Substance: TENOFOVIR
     Indication: HIV infection
     Route: 065

REACTIONS (2)
  - Osteomalacia [Recovering/Resolving]
  - Fanconi syndrome [Recovering/Resolving]
